FAERS Safety Report 7875814-6 (Version None)
Quarter: 2011Q4

REPORT INFORMATION
  Report Type: 
  Country: None (occurrence: None)
  Receive Date: 20111031
  Receipt Date: 20111017
  Transmission Date: 20120403
  Serious: Yes (Other)
  Sender: FDA-Public Use
  Company Number: PHHY2011JP81231

PATIENT
  Age: 63 Year
  Sex: Male

DRUGS (5)
  1. SANDIMMUNE [Suspect]
     Indication: PUSTULAR PSORIASIS
     Dosage: 6 MG/KG
     Route: 048
     Dates: start: 19950101, end: 20001201
  2. NEORAL [Suspect]
     Dosage: 50 MG, DAILY
     Route: 048
     Dates: end: 20101014
  3. NEORAL [Suspect]
     Dosage: 75 MG, DAILY
     Route: 048
  4. NEORAL [Suspect]
     Indication: PUSTULAR PSORIASIS
     Dosage: 250 MG, DAILY
     Route: 048
     Dates: start: 20001201
  5. NEORAL [Suspect]
     Dosage: 100 MG, DAILY
     Route: 048

REACTIONS (9)
  - ERYTHRODERMIC PSORIASIS [None]
  - ERYTHEMA [None]
  - C-REACTIVE PROTEIN INCREASED [None]
  - SQUAMOUS CELL CARCINOMA [None]
  - RASH PUSTULAR [None]
  - SKIN DISORDER [None]
  - HYPERTENSION [None]
  - OEDEMA [None]
  - LEUKOCYTOSIS [None]
